FAERS Safety Report 20980208 (Version 5)
Quarter: 2022Q3

REPORT INFORMATION
  Report Type: Report from Study
  Country: CN (occurrence: CN)
  Receive Date: 20220620
  Receipt Date: 20220811
  Transmission Date: 20221027
  Serious: Yes (Hospitalization, Other)
  Sender: FDA-Public Use
  Company Number: CN-BoehringerIngelheim-2022-BI-170030

PATIENT
  Age: 66 Year
  Sex: Male
  Weight: 78 kg

DRUGS (11)
  1. ALTEPLASE [Suspect]
     Active Substance: ALTEPLASE
     Indication: Ischaemic stroke
     Dosage: MOST RECENT DOSE: 09/MAY/2022
     Route: 042
     Dates: start: 20220509, end: 20220509
  2. ALTEPLASE [Suspect]
     Active Substance: ALTEPLASE
     Indication: Haemorrhagic transformation stroke
  3. PANTOPRAZOLE SODIUM [Concomitant]
     Active Substance: PANTOPRAZOLE SODIUM
     Indication: Ischaemic stroke
     Dosage: ENTERIC COATED TABLETS
     Route: 048
     Dates: start: 20220509
  4. ATORVASTATIN CALCIUM [Concomitant]
     Active Substance: ATORVASTATIN CALCIUM
     Indication: Ischaemic stroke
     Route: 048
     Dates: start: 20220509
  5. BUTYLPHTHALIDE [Concomitant]
     Active Substance: BUTYLPHTHALIDE
     Indication: Ischaemic stroke
     Route: 042
     Dates: start: 20220509
  6. KALLIDINOGENASE [Concomitant]
     Active Substance: KALLIDINOGENASE
     Indication: Ischaemic stroke
     Dosage: O.15 PNAU IV DROP
     Dates: start: 20220510
  7. URAPIDIL HYDROCHLORIDE [Concomitant]
     Active Substance: URAPIDIL HYDROCHLORIDE
     Indication: Hypertension
     Route: 042
     Dates: start: 20220509
  8. MANNITOL [Concomitant]
     Active Substance: MANNITOL
     Indication: Ischaemic stroke
     Dosage: IV DROPE
     Dates: start: 20220510
  9. RABEPRAZOLE SODIUM [Concomitant]
     Active Substance: RABEPRAZOLE SODIUM
     Indication: Ischaemic stroke
     Route: 048
     Dates: start: 20220509
  10. URAPIDIL HYDROCHLORIDE [Concomitant]
     Active Substance: URAPIDIL HYDROCHLORIDE
     Indication: Hypertension
     Route: 042
     Dates: start: 20220509
  11. EDARAVONE [Concomitant]
     Active Substance: EDARAVONE
     Indication: Ischaemic stroke
     Route: 042
     Dates: start: 20220509

REACTIONS (5)
  - Haemorrhagic cerebral infarction [Recovered/Resolved]
  - Haemorrhage urinary tract [Not Recovered/Not Resolved]
  - Pneumonia [Not Recovered/Not Resolved]
  - Intracranial infection [Not Recovered/Not Resolved]
  - Deep vein thrombosis [Not Recovered/Not Resolved]

NARRATIVE: CASE EVENT DATE: 20220509
